FAERS Safety Report 9645694 (Version 2)
Quarter: 2013Q4

REPORT INFORMATION
  Report Type: Spontaneous
  Country: BE (occurrence: BE)
  Receive Date: 20131025
  Receipt Date: 20131030
  Transmission Date: 20140711
  Serious: Yes (Death)
  Sender: FDA-Public Use
  Company Number: BE-JNJFOC-20131013909

PATIENT
  Age: 80 Year
  Sex: Male

DRUGS (2)
  1. XARELTO [Suspect]
     Indication: HIP ARTHROPLASTY
     Route: 048
  2. XARELTO [Suspect]
     Indication: THROMBOSIS PROPHYLAXIS
     Route: 048

REACTIONS (1)
  - Hepatic failure [Fatal]
